FAERS Safety Report 5953163-0 (Version None)
Quarter: 2008Q4

REPORT INFORMATION
  Report Type: 
  Country: None (occurrence: None)
  Receive Date: 20081031
  Receipt Date: 20080428
  Transmission Date: 20090506
  Serious: Yes (Hospitalization, Other)
  Sender: FDA-Public Use
  Company Number: US023386

PATIENT
  Age: 39 Year
  Sex: Female
  Weight: 100.2449 kg

DRUGS (3)
  1. PROVIGIL [Suspect]
     Dosage: 100MG ONE TO TWO PER DAY ORAL
     Route: 048
     Dates: start: 20080320, end: 20080417
  2. SONATA /01454001/ [Concomitant]
  3. ZOLOFT [Concomitant]

REACTIONS (1)
  - HYPERTENSION [None]
